FAERS Safety Report 8758962 (Version 1)
Quarter: 2012Q4

REPORT INFORMATION
  Report Type: 
  Country: US (occurrence: US)
  Receive Date: 20120829
  Receipt Date: 20120829
  Transmission Date: 20130627
  Serious: No
  Sender: FDA-Public Use
  Company Number: US-009507513-1207USA011493

PATIENT

DRUGS (3)
  1. VICTRELIS [Suspect]
     Indication: HEPATITIS C
     Dosage: 200 mg, UNK
     Route: 048
     Dates: start: 2012, end: 2012
  2. PEGASYS [Concomitant]
     Indication: HEPATITIS C
     Dosage: 180 Microgram, qw
  3. RIBAPAK [Concomitant]
     Indication: HEPATITIS C
     Dosage: 600 mg, bid

REACTIONS (1)
  - Nausea [Not Recovered/Not Resolved]
